FAERS Safety Report 9718275 (Version 1)
Quarter: 2013Q4

REPORT INFORMATION
  Report Type: Spontaneous
  Country: US (occurrence: US)
  Receive Date: 20131125
  Receipt Date: 20131125
  Transmission Date: 20140711
  Serious: No
  Sender: FDA-Public Use
  Company Number: US-VIVUS-2013V1000205

PATIENT
  Sex: Male

DRUGS (1)
  1. QSYMIA 3.75MG/23MG [Suspect]
     Indication: OBESITY
     Dates: start: 20130306, end: 20130320

REACTIONS (6)
  - Blood pressure increased [Recovered/Resolved]
  - Constipation [Unknown]
  - Impaired healing [Unknown]
  - Contusion [Unknown]
  - Muscle strain [Unknown]
  - Diarrhoea [Unknown]
